FAERS Safety Report 16133093 (Version 1)
Quarter: 2019Q1

REPORT INFORMATION
  Report Type: Spontaneous
  Country: US (occurrence: US)
  Receive Date: 20190226
  Receipt Date: 20190226
  Transmission Date: 20190418
  Serious: No
  Sender: FDA-Public Use
  Company Number: None

PATIENT
  Age: 70 Year
  Sex: Female

DRUGS (1)
  1. PROLIA [Suspect]
     Active Substance: DENOSUMAB
     Indication: BONE DENSITY ABNORMAL
     Dosage: OTHER FREQUENCY:EVERY 6 MONTHS;?
     Route: 058
     Dates: start: 20180621, end: 20190215

REACTIONS (6)
  - Dizziness [None]
  - Fatigue [None]
  - Pain [None]
  - Decreased appetite [None]
  - Bone pain [None]
  - Malaise [None]

NARRATIVE: CASE EVENT DATE: 201806
